FAERS Safety Report 13146471 (Version 1)
Quarter: 2017Q1

REPORT INFORMATION
  Report Type: Spontaneous
  Country: DK (occurrence: DK)
  Receive Date: 20170125
  Receipt Date: 20170125
  Transmission Date: 20170428
  Serious: Yes (Other)
  Sender: FDA-Public Use
  Company Number: DK-BION-005896

PATIENT
  Age: 73 Year
  Sex: Male

DRUGS (1)
  1. NAPROXEN UNKNOWN PRODUCT [Suspect]
     Active Substance: NAPROXEN
     Indication: PRODUCT USED FOR UNKNOWN INDICATION

REACTIONS (1)
  - Pseudoporphyria [Recovered/Resolved]

NARRATIVE: CASE EVENT DATE: 2015
